FAERS Safety Report 19638903 (Version 2)
Quarter: 2022Q1

REPORT INFORMATION
  Report Type: Spontaneous
  Country: US (occurrence: US)
  Receive Date: 20210729
  Receipt Date: 20220209
  Transmission Date: 20220423
  Serious: Yes (Other)
  Sender: FDA-Public Use
  Company Number: US-SA-SAC20210723001064

PATIENT
  Age: 48 Year
  Sex: Female

DRUGS (3)
  1. AUBAGIO [Suspect]
     Active Substance: TERIFLUNOMIDE
     Indication: Multiple sclerosis
     Dosage: 14 MG, QD
     Route: 048
     Dates: start: 20161018
  2. EPSOM SALT [Concomitant]
     Active Substance: MAGNESIUM SULFATE
  3. BACLOFEN [Concomitant]
     Active Substance: BACLOFEN

REACTIONS (4)
  - Multiple sclerosis relapse [Unknown]
  - Road traffic accident [Unknown]
  - Back pain [Unknown]
  - Neck pain [Unknown]

NARRATIVE: CASE EVENT DATE: 20210701
